FAERS Safety Report 5261682-8 (Version None)
Quarter: 2007Q1

REPORT INFORMATION
  Report Type: 
  Country: None (occurrence: None)
  Receive Date: 20061218
  Receipt Date: 20060906
  Transmission Date: 20070707
  Serious: No
  Sender: FDA-Public Use
  Company Number: US200609001547

PATIENT
  Age: 65 Year
  Sex: Male

DRUGS (3)
  1. CIALIS [Suspect]
     Dosage: 10 MG,
     Dates: start: 20060701
  2. ACTOS [Concomitant]
  3. LISINOPRIL [Concomitant]

REACTIONS (2)
  - DRUG INEFFECTIVE [None]
  - ERYTHEMA [None]
